FAERS Safety Report 8859519 (Version 1)
Quarter: 2012Q4

REPORT INFORMATION
  Report Type: 
  Country: US (occurrence: US)
  Receive Date: 20121024
  Receipt Date: 20121024
  Transmission Date: 20130627
  Serious: No
  Sender: FDA-Public Use
  Company Number: US-ROCHE-GNE271707

PATIENT
  Sex: Female

DRUGS (3)
  1. RAPTIVA [Suspect]
     Indication: PSORIASIS
     Dosage: unk
     Route: 065
  2. RAPTIVA [Suspect]
     Indication: PUSTULAR PSORIASIS
  3. RAPTIVA [Suspect]
     Indication: DERMATITIS

REACTIONS (5)
  - Exposure during pregnancy [Unknown]
  - Pruritus [Unknown]
  - Haemorrhage [Unknown]
  - Skin exfoliation [Unknown]
  - Pain [Unknown]
